FAERS Safety Report 4598116-2 (Version None)
Quarter: 2005Q1

REPORT INFORMATION
  Report Type: 
  Country: None (occurrence: None)
  Receive Date: 20050301
  Receipt Date: 20050301
  Transmission Date: 20050727
  Serious: No
  Sender: FDA-Public Use
  Company Number: None

PATIENT
  Age: 83 Year
  Sex: Female

DRUGS (5)
  1. ISOSORBIDE MONONITRATE [Suspect]
     Indication: ANGINA PECTORIS
     Dosage: ONE DAILY
     Dates: start: 20041227, end: 20050228
  2. ZOCOR [Concomitant]
  3. PLAVIX [Concomitant]
  4. ATENOLOL [Concomitant]
  5. FLUOXETINE [Concomitant]

REACTIONS (5)
  - ANGINA PECTORIS [None]
  - DIARRHOEA [None]
  - DYSPNOEA [None]
  - EXERCISE CAPACITY DECREASED [None]
  - VISUAL DISTURBANCE [None]
